FAERS Safety Report 25265148 (Version 1)
Quarter: 2025Q2

REPORT INFORMATION
  Report Type: Report from Study
  Country: PH (occurrence: PH)
  Receive Date: 20250502
  Receipt Date: 20250502
  Transmission Date: 20250717
  Serious: Yes (Death)
  Sender: OTSUKA
  Company Number: PH-MMM-Otsuka-2J5CXIDP

PATIENT
  Sex: Male

DRUGS (1)
  1. TOLVAPTAN [Suspect]
     Active Substance: TOLVAPTAN
     Indication: Swelling
     Dosage: 0.5 DF, DAILY (15 MG HALF TABLET A DAY)
     Route: 048
     Dates: start: 202407, end: 20250424

REACTIONS (3)
  - Hepatic cirrhosis [Fatal]
  - Cardiomegaly [Fatal]
  - Cardiac failure [Fatal]
